FAERS Safety Report 6177056-1 (Version None)
Quarter: 2009Q2

REPORT INFORMATION
  Report Type: 
  Country: None (occurrence: None)
  Receive Date: 20090501
  Receipt Date: 20090417
  Transmission Date: 20091009
  Serious: Yes (Hospitalization)
  Sender: FDA-Public Use
  Company Number: JP-GENENTECH-271834

PATIENT
  Sex: Female

DRUGS (12)
  1. AVASTIN [Suspect]
     Indication: COLON CANCER METASTATIC
     Dosage: 200 MG, Q2W
     Route: 042
     Dates: start: 20080904
  2. KYTRIL [Suspect]
     Indication: PROPHYLAXIS
     Dosage: 3 MG, Q2W
     Route: 042
     Dates: start: 20080904
  3. ELPLAT [Suspect]
     Indication: COLON CANCER METASTATIC
     Dosage: 85 MG, UNK
     Route: 042
     Dates: start: 20080904
  4. FLUOROURACIL [Suspect]
     Indication: COLON CANCER METASTATIC
     Dosage: 400 MG, Q2W
     Route: 042
     Dates: start: 20080904
  5. LEUCOVORIN CALCIUM [Suspect]
     Indication: COLON CANCER METASTATIC
     Dosage: 100 MG, Q2W
     Route: 042
     Dates: start: 20080904
  6. DEXAMETHASONE SODIUM PHOSPHATE [Suspect]
     Indication: DRUG USE FOR UNKNOWN INDICATION
     Dosage: 8 MG, Q2W
     Route: 042
     Dates: start: 20080904
  7. LEUCOVORIN CALCIUM [Suspect]
     Dosage: 100 MG, Q2W
     Route: 042
     Dates: start: 20081022
  8. BLOPRESS [Concomitant]
     Indication: DRUG USE FOR UNKNOWN INDICATION
     Dosage: UNK
  9. NORVASC [Concomitant]
     Indication: DRUG USE FOR UNKNOWN INDICATION
     Dosage: UNK
  10. TAGAMET [Concomitant]
     Indication: DRUG USE FOR UNKNOWN INDICATION
     Dosage: UNK
  11. MUCOSTA [Concomitant]
     Indication: DRUG USE FOR UNKNOWN INDICATION
     Dosage: UNK
  12. FERROUS SULFATE TAB [Concomitant]
     Indication: DRUG USE FOR UNKNOWN INDICATION
     Dosage: UNK

REACTIONS (2)
  - BLOOD PRESSURE INCREASED [None]
  - CONVULSION [None]
